FAERS Safety Report 4887444-9 (Version None)
Quarter: 2006Q1

REPORT INFORMATION
  Report Type: 
  Country: None (occurrence: None)
  Receive Date: 20060118
  Receipt Date: 20051229
  Transmission Date: 20060701
  Serious: Yes (Life-Threatening, Hospitalization)
  Sender: FDA-Public Use
  Company Number: AR2005 0001

PATIENT
  Age: 36 Year
  Sex: Female

DRUGS (1)
  1. DOTAREM     DOTAREM    MEGLUMINE GADOTERATE [Suspect]
     Indication: PHYSICAL EXAMINATION
     Dosage: 10 ML PER DAY, INTRAVENOUS
     Route: 042
     Dates: start: 20050112

REACTIONS (8)
  - DYSPNOEA [None]
  - FAECAL INCONTINENCE [None]
  - GENERALISED ERYTHEMA [None]
  - HEART RATE DECREASED [None]
  - HYPOTENSION [None]
  - LARYNGEAL OEDEMA [None]
  - THROAT TIGHTNESS [None]
  - URINARY INCONTINENCE [None]
